FAERS Safety Report 7544213-9 (Version None)
Quarter: 2011Q2

REPORT INFORMATION
  Report Type: 
  Country: None (occurrence: None)
  Receive Date: 20110613
  Receipt Date: 20060730
  Transmission Date: 20111010
  Serious: Yes (Hospitalization)
  Sender: FDA-Public Use
  Company Number: PHHO2006TW12447

PATIENT
  Sex: Male
  Weight: 60 kg

DRUGS (3)
  1. VITAMIN D [Concomitant]
     Dosage: UNK
  2. ZOLEDRONIC ACID [Suspect]
     Indication: METASTASES TO BONE
     Dosage: 4MG EVERY 3-4 WEEKS
     Route: 042
     Dates: start: 20060308
  3. CALCIUM CARBONATE [Concomitant]
     Dosage: UNK

REACTIONS (1)
  - TUMOUR ASSOCIATED FEVER [None]
